FAERS Safety Report 4466925-6 (Version None)
Quarter: 2004Q3

REPORT INFORMATION
  Report Type: 
  Country: None (occurrence: None)
  Receive Date: 20040930
  Receipt Date: 20040930
  Transmission Date: 20050211
  Serious: Yes (Life-Threatening)
  Sender: FDA-Public Use
  Company Number: None

PATIENT
  Sex: Male
  Weight: 11.6 kg

DRUGS (4)
  1. VINCRISTINE [Suspect]
     Indication: NEUROBLASTOMA
     Dosage: 0.25 GM/DAY - CI (VCR)
     Route: 050
     Dates: start: 20040920
  2. VINCRISTINE [Suspect]
     Indication: NEUROBLASTOMA
     Dosage: 0.25 GM/DAY - CI (VCR)
     Route: 050
     Dates: start: 20040921
  3. CYCLOPHOSPHAMIDE [Suspect]
     Dosage: 0.81 GM / DAY - IV (CYTOX)
     Route: 042
     Dates: start: 20040828
  4. CYCLOPHOSPHAMIDE [Suspect]
     Dosage: 0.81 GM / DAY - IV (CYTOX)
     Route: 042
     Dates: start: 20040829

REACTIONS (3)
  - GRAND MAL CONVULSION [None]
  - INAPPROPRIATE ANTIDIURETIC HORMONE SECRETION [None]
  - INFUSION RELATED REACTION [None]
